FAERS Safety Report 25215374 (Version 2)
Quarter: 2025Q2

REPORT INFORMATION
  Report Type: Spontaneous
  Country: GB (occurrence: GB)
  Receive Date: 20250418
  Receipt Date: 20250422
  Transmission Date: 20250716
  Serious: Yes (Disabling, Other)
  Sender: Kenvue
  Company Number: None

PATIENT

DRUGS (2)
  1. IMODIUM [Suspect]
     Active Substance: LOPERAMIDE HYDROCHLORIDE
     Indication: Diarrhoea
     Route: 065
     Dates: start: 20250404
  2. DIORALYTE [Suspect]
     Active Substance: CITRIC ACID MONOHYDRATE\DEXTROSE\POTASSIUM CATION\SODIUM CHLORIDE
     Indication: Product used for unknown indication
     Route: 065

REACTIONS (2)
  - Medication error [Unknown]
  - Megacolon [Recovering/Resolving]

NARRATIVE: CASE EVENT DATE: 20250404
